FAERS Safety Report 19059298 (Version 3)
Quarter: 2022Q1

REPORT INFORMATION
  Report Type: Report from Study
  Country: CA (occurrence: CA)
  Receive Date: 20210326
  Receipt Date: 20220315
  Transmission Date: 20220423
  Serious: No
  Sender: FDA-Public Use
  Company Number: CA-JNJFOC-20201124503

PATIENT
  Age: 83 Year
  Sex: Male
  Weight: 55.388 kg

DRUGS (3)
  1. STELARA [Suspect]
     Active Substance: USTEKINUMAB
     Indication: Crohn^s disease
     Route: 042
     Dates: start: 20191010
  2. STELARA [Suspect]
     Active Substance: USTEKINUMAB
     Route: 058
     Dates: start: 20200414
  3. STELARA [Suspect]
     Active Substance: USTEKINUMAB
     Dosage: REINDUCTION W0, 390 MG, THEN DOSE MAINTANANCE AT 90 MG Q8 WEEKS
     Route: 042

REACTIONS (7)
  - Flatulence [Not Recovered/Not Resolved]
  - Visual impairment [Unknown]
  - Product colour issue [Unknown]
  - Product label issue [Unknown]
  - Product dose omission issue [Unknown]
  - Off label use [Unknown]
  - Incorrect dose administered [Unknown]

NARRATIVE: CASE EVENT DATE: 20220310
